FAERS Safety Report 7151082-8 (Version None)
Quarter: 2010Q4

REPORT INFORMATION
  Report Type: 
  Country: None (occurrence: None)
  Receive Date: 20101210
  Receipt Date: 20101130
  Transmission Date: 20110411
  Serious: Yes (Hospitalization)
  Sender: FDA-Public Use
  Company Number: US-JNJFOC-20101202031

PATIENT
  Age: 18 Year
  Sex: Male

DRUGS (8)
  1. ACETAMINOPHEN [Suspect]
     Route: 048
  2. ACETAMINOPHEN [Suspect]
     Indication: PRODUCT USED FOR UNKNOWN INDICATION
     Route: 048
  3. SEROQUEL [Concomitant]
     Indication: DEPRESSION
  4. CELEXA [Concomitant]
     Indication: DEPRESSION
  5. CLONIDINE [Concomitant]
     Indication: DEPRESSION
  6. ABILIFY [Concomitant]
     Indication: DRUG HYPERSENSITIVITY
  7. KLONOPIN [Concomitant]
     Indication: DEPRESSION
  8. BETAINE [Concomitant]
     Indication: HOMOCYSTINURIA

REACTIONS (2)
  - ACUTE HEPATIC FAILURE [None]
  - LEUKOENCEPHALOPATHY [None]
